FAERS Safety Report 7691009-3 (Version None)
Quarter: 2011Q3

REPORT INFORMATION
  Report Type: 
  Country: None (occurrence: None)
  Receive Date: 20110818
  Receipt Date: 20110805
  Transmission Date: 20111222
  Serious: Yes (Other)
  Sender: FDA-Public Use
  Company Number: US-UCBSA-032746

PATIENT
  Sex: Male

DRUGS (4)
  1. CIPROFLOXACIN [Concomitant]
     Indication: CROHN'S DISEASE
     Dates: start: 20101101
  2. CIMZIA [Suspect]
     Indication: CROHN'S DISEASE
     Route: 058
     Dates: start: 20081204
  3. XIFAXAN [Concomitant]
     Dosage: X 2WEEKS
     Dates: start: 20101101
  4. FLAGYL [Concomitant]
     Indication: CROHN'S DISEASE
     Dates: start: 20101101

REACTIONS (2)
  - PULMONARY MASS [None]
  - NEURILEMMOMA BENIGN [None]
